FAERS Safety Report 19361854 (Version 2)
Quarter: 2021Q3

REPORT INFORMATION
  Report Type: Spontaneous
  Country: US (occurrence: US)
  Receive Date: 20210603
  Receipt Date: 20210810
  Transmission Date: 20211014
  Serious: Yes (Other)
  Sender: FDA-Public Use
  Company Number: US-SA-2021SA181581

PATIENT
  Age: 60 Year
  Sex: Female

DRUGS (1)
  1. DUPIXENT [Suspect]
     Active Substance: DUPILUMAB
     Indication: DERMATITIS ATOPIC
     Dosage: 300 MG, QOW
     Route: 058
     Dates: start: 202105

REACTIONS (13)
  - Myalgia [Unknown]
  - Malaise [Not Recovered/Not Resolved]
  - Feeling abnormal [Not Recovered/Not Resolved]
  - Pneumonia [Not Recovered/Not Resolved]
  - Nasal mucosal discolouration [Not Recovered/Not Resolved]
  - Muscle spasms [Unknown]
  - Pain in jaw [Unknown]
  - Headache [Unknown]
  - Sinusitis [Unknown]
  - Neck pain [Unknown]
  - Periorbital swelling [Unknown]
  - Dry skin [Unknown]
  - Skin irritation [Unknown]

NARRATIVE: CASE EVENT DATE: 2021
